FAERS Safety Report 25925735 (Version 1)
Quarter: 2025Q4

REPORT INFORMATION
  Report Type: Spontaneous
  Country: US (occurrence: US)
  Receive Date: 20251015
  Receipt Date: 20251015
  Transmission Date: 20260119
  Serious: No
  Sender: JOHNSON AND JOHNSON
  Company Number: US-JNJFOC-20251012498

PATIENT
  Age: 29 Year
  Sex: Female

DRUGS (1)
  1. IMAAVY [Suspect]
     Active Substance: NIPOCALIMAB-AAHU
     Indication: Myasthenia gravis
     Route: 041
     Dates: start: 20250930

REACTIONS (5)
  - Throat irritation [Not Recovered/Not Resolved]
  - Pain [Unknown]
  - Throat tightness [Unknown]
  - Pruritus [Unknown]
  - Rash [Not Recovered/Not Resolved]

NARRATIVE: CASE EVENT DATE: 20250930
